FAERS Safety Report 25907192 (Version 1)
Quarter: 2025Q4

REPORT INFORMATION
  Report Type: Spontaneous
  Country: US (occurrence: US)
  Receive Date: 20251010
  Receipt Date: 20251010
  Transmission Date: 20260118
  Serious: Yes (Other)
  Sender: GRANULES PHARMACEUTICALS INC
  Company Number: US-GRANULES-US-2025GRALIT00549

PATIENT
  Age: 29 Year
  Sex: Male

DRUGS (3)
  1. ACETAMINOPHEN [Suspect]
     Active Substance: ACETAMINOPHEN
     Indication: Toothache
     Dosage: LESS THAN 2 G
     Route: 065
  2. ACETAMINOPHEN [Suspect]
     Active Substance: ACETAMINOPHEN
     Indication: Back pain
  3. SOFOSBUVIR\VELPATASVIR [Concomitant]
     Active Substance: SOFOSBUVIR\VELPATASVIR
     Indication: Acute hepatitis C
     Route: 065

REACTIONS (2)
  - Liver injury [Recovered/Resolved]
  - Overdose [Unknown]
